FAERS Safety Report 11877269 (Version 1)
Quarter: 2015Q4

REPORT INFORMATION
  Report Type: Spontaneous
  Country: US (occurrence: US)
  Receive Date: 20151229
  Receipt Date: 20151229
  Transmission Date: 20160305
  Serious: Yes (Other)
  Sender: FDA-Public Use
  Company Number: US-ACTELION-A-US2015-129079

PATIENT
  Age: 58 Year
  Sex: Female

DRUGS (1)
  1. VELETRI [Suspect]
     Active Substance: EPOPROSTENOL
     Indication: PULMONARY HYPERTENSION
     Dosage: 61 NG/KG, PER MIN
     Route: 042
     Dates: start: 20120711

REACTIONS (2)
  - Embolism [Unknown]
  - Pulmonary hypertension [Unknown]
